FAERS Safety Report 4407079-1 (Version None)
Quarter: 2004Q3

REPORT INFORMATION
  Report Type: 
  Country: None (occurrence: None)
  Receive Date: 20040723
  Receipt Date: 20040723
  Transmission Date: 20050211
  Serious: No
  Sender: FDA-Public Use
  Company Number: None

PATIENT

DRUGS (2)
  1. RISPERDAL CONSTA [Suspect]
     Dosage: 25 MG EVERY 2 WEE INTRAMUSCULAR
     Route: 030
  2. RISPERDAL CONSTA [Suspect]
     Dosage: 37.5 MG EVERY 2 WE INTRAMUSCULAR
     Route: 030

REACTIONS (2)
  - DEVICE FAILURE [None]
  - PHARMACEUTICAL PRODUCT COMPLAINT [None]
